FAERS Safety Report 16766563 (Version 1)
Quarter: 2019Q3

REPORT INFORMATION
  Report Type: Spontaneous
  Country: US (occurrence: US)
  Receive Date: 20190903
  Receipt Date: 20190903
  Transmission Date: 20191005
  Serious: No
  Sender: FDA-Public Use
  Company Number: US-PFIZER INC-2019372318

PATIENT

DRUGS (3)
  1. LATANOPROST. [Suspect]
     Active Substance: LATANOPROST
     Indication: GLAUCOMA
     Dosage: UNK, ALTERNATE DAY
  2. LATANOPROST. [Suspect]
     Active Substance: LATANOPROST
     Indication: CATARACT
  3. LATANOPROST. [Suspect]
     Active Substance: LATANOPROST
     Indication: AGE-RELATED MACULAR DEGENERATION

REACTIONS (2)
  - Nervousness [Unknown]
  - Intentional product use issue [Unknown]
